FAERS Safety Report 9158201 (Version 1)
Quarter: 2013Q1

REPORT INFORMATION
  Report Type: Report from Study
  Country: HU (occurrence: HU)
  Receive Date: 20130312
  Receipt Date: 20130312
  Transmission Date: 20140127
  Serious: Yes (Hospitalization)
  Sender: FDA-Public Use
  Company Number: HU-ROCHE-1200028

PATIENT
  Age: 76 Year
  Sex: Male
  Weight: 85 kg

DRUGS (6)
  1. TOCILIZUMAB [Suspect]
     Indication: RHEUMATOID ARTHRITIS
     Route: 042
     Dates: start: 20111220
  2. TREXAN (HUNGARY) [Concomitant]
     Indication: RHEUMATOID ARTHRITIS
     Route: 048
     Dates: start: 20110825
  3. COAPROVEL [Concomitant]
     Indication: HYPERTENSION
     Dosage: DOSE: 300/25
     Route: 048
     Dates: start: 2007
  4. NITROMINT [Concomitant]
     Indication: MYOCARDIAL ISCHAEMIA
     Route: 062
     Dates: start: 2005
  5. SYMBICORT [Concomitant]
     Indication: CHRONIC OBSTRUCTIVE PULMONARY DISEASE
     Dosage: PUFF
     Route: 050
     Dates: start: 2000
  6. NORMODIPINE [Concomitant]
     Indication: HYPERTENSION
     Route: 048
     Dates: start: 2005

REACTIONS (1)
  - Pain in extremity [Recovered/Resolved]
